FAERS Safety Report 7416539-0 (Version None)
Quarter: 2011Q2

REPORT INFORMATION
  Report Type: 
  Country: None (occurrence: None)
  Receive Date: 20110414
  Receipt Date: 20110404
  Transmission Date: 20111010
  Serious: Yes (Death, Other)
  Sender: FDA-Public Use
  Company Number: AR-BRISTOL-MYERS SQUIBB COMPANY-15531304

PATIENT
  Sex: Female

DRUGS (7)
  1. IXEMPRA KIT [Suspect]
     Indication: METASTASIS
     Dosage: 8 TH CYCLE INCRESED TO 70 MG.THEN DECREASED TO60 MG ON MAY09.
     Dates: start: 20080901
  2. CAPECITABINE [Concomitant]
     Dosage: 1 DF: 1.5 G/M2
     Dates: start: 20080901
  3. CARBAMAZEPINE [Concomitant]
     Dates: start: 20090101
  4. DELTISON [Concomitant]
     Dates: start: 20090601
  5. CLARITHROMYCIN [Concomitant]
  6. IXEMPRA KIT [Suspect]
     Indication: BREAST CANCER
     Dosage: 8 TH CYCLE INCRESED TO 70 MG.THEN DECREASED TO60 MG ON MAY09.
     Dates: start: 20080901
  7. VITAMIN B COMPLEX CAP [Concomitant]
     Dates: start: 20091201

REACTIONS (4)
  - HEPATIC FAILURE [None]
  - PARAESTHESIA [None]
  - PALMAR-PLANTAR ERYTHRODYSAESTHESIA SYNDROME [None]
  - HEPATIC CIRRHOSIS [None]
